FAERS Safety Report 18929412 (Version 1)
Quarter: 2021Q1

REPORT INFORMATION
  Report Type: Spontaneous
  Country: US (occurrence: US)
  Receive Date: 20210223
  Receipt Date: 20210223
  Transmission Date: 20210420
  Serious: No
  Sender: FDA-Public Use
  Company Number: US-ROCHE-2657351

PATIENT
  Age: 8 Year
  Sex: Female

DRUGS (2)
  1. NUTROPIN [Suspect]
     Active Substance: SOMATROPIN
     Indication: PRODUCT USED FOR UNKNOWN INDICATION
     Dosage: FORM: NUTROPIN AQ NUSPIN 10 PEN
     Route: 058
     Dates: start: 202001
  2. NUTROPIN [Suspect]
     Active Substance: SOMATROPIN

REACTIONS (3)
  - Product dose omission issue [Unknown]
  - Device defective [Unknown]
  - No adverse event [Unknown]

NARRATIVE: CASE EVENT DATE: 20200809
